FAERS Safety Report 20011059 (Version 2)
Quarter: 2022Q1

REPORT INFORMATION
  Report Type: Spontaneous
  Country: US (occurrence: US)
  Receive Date: 20211029
  Receipt Date: 20220131
  Transmission Date: 20220423
  Serious: No
  Sender: FDA-Public Use
  Company Number: US-SA-SAC20211026001043

PATIENT
  Age: 41 Year
  Sex: Male

DRUGS (1)
  1. DUPIXENT [Suspect]
     Active Substance: DUPILUMAB
     Dosage: 300 MG
     Route: 058
     Dates: start: 20210727

REACTIONS (4)
  - Dry skin [Unknown]
  - Muscle spasms [Unknown]
  - Myalgia [Unknown]
  - Dry eye [Unknown]

NARRATIVE: CASE EVENT DATE: 20210728
